FAERS Safety Report 24245864 (Version 1)
Quarter: 2024Q3

REPORT INFORMATION
  Report Type: Report from Study
  Country: CA (occurrence: CA)
  Receive Date: 20240824
  Receipt Date: 20240824
  Transmission Date: 20241016
  Serious: Yes (Other)
  Sender: NOVARTIS
  Company Number: CA-002147023-NVSC2024CA086451

PATIENT
  Age: 55 Year
  Sex: Female

DRUGS (3)
  1. KISQALI [Suspect]
     Active Substance: RIBOCICLIB
     Indication: Breast cancer
     Dosage: 400 MG, QD (2 TABLETS (400 MG TOTAL) BY MOUTH DAILY FOR 5 DAYS. THEN STOP FOR 7 DAYS)
     Route: 048
     Dates: start: 20240120
  2. KISQALI [Suspect]
     Active Substance: RIBOCICLIB
     Indication: Breast cancer metastatic
     Dosage: 600 MG, QD
     Route: 048
  3. KISQALI [Suspect]
     Active Substance: RIBOCICLIB
     Dosage: 400 MG, QD
     Route: 048

REACTIONS (5)
  - Neuropathy peripheral [Unknown]
  - Constipation [Not Recovered/Not Resolved]
  - Paraesthesia [Unknown]
  - Off label use [Unknown]
  - Concomitant disease aggravated [Unknown]
